FAERS Safety Report 18461884 (Version 19)
Quarter: 2025Q3

REPORT INFORMATION
  Report Type: Report from Study
  Country: CO (occurrence: CO)
  Receive Date: 20201104
  Receipt Date: 20250822
  Transmission Date: 20251020
  Serious: Yes (Other)
  Sender: TAKEDA
  Company Number: CO-TAKEDA-2020TUS026847

PATIENT
  Age: 47 Year
  Sex: Female
  Weight: 50 kg

DRUGS (2)
  1. VEDOLIZUMAB [Suspect]
     Active Substance: VEDOLIZUMAB
     Indication: Colitis ulcerative
  2. VEDOLIZUMAB [Suspect]
     Active Substance: VEDOLIZUMAB
     Dosage: 300 MILLIGRAM, Q4WEEKS
     Dates: start: 20250815

REACTIONS (30)
  - COVID-19 [Recovered/Resolved]
  - Malaise [Recovering/Resolving]
  - Product availability issue [Unknown]
  - Discouragement [Recovered/Resolved]
  - Weight increased [Unknown]
  - Gastrointestinal pain [Recovering/Resolving]
  - Faecal calprotectin increased [Unknown]
  - Drug ineffective [Unknown]
  - Pain [Recovering/Resolving]
  - Sacral pain [Recovering/Resolving]
  - Burning sensation [Recovering/Resolving]
  - Blood pressure decreased [Recovering/Resolving]
  - Thermal burn [Recovering/Resolving]
  - Eczema eyelids [Recovering/Resolving]
  - Treatment noncompliance [Unknown]
  - Gastrointestinal inflammation [Unknown]
  - Alopecia [Unknown]
  - Mucous stools [Unknown]
  - Coccydynia [Unknown]
  - Frequent bowel movements [Unknown]
  - Rectal tenesmus [Unknown]
  - Abdominal pain [Recovering/Resolving]
  - Decreased appetite [Recovering/Resolving]
  - Nasal congestion [Recovering/Resolving]
  - Abdominal distension [Unknown]
  - Headache [Recovered/Resolved]
  - Fatigue [Recovering/Resolving]
  - Cough [Recovering/Resolving]
  - Pain in extremity [Recovering/Resolving]
  - Pyrexia [Recovering/Resolving]

NARRATIVE: CASE EVENT DATE: 20200606
